FAERS Safety Report 14066666 (Version 3)
Quarter: 2017Q4

REPORT INFORMATION
  Report Type: Spontaneous
  Country: GR (occurrence: GR)
  Receive Date: 20171010
  Receipt Date: 20171101
  Transmission Date: 20180321
  Serious: Yes (Hospitalization)
  Sender: FDA-Public Use
  Company Number: GR-B.I. PHARMACEUTICALS,INC./RIDGEFIELD-2017-BI-054317

PATIENT
  Age: 84 Year
  Sex: Female

DRUGS (1)
  1. PRADAXA [Suspect]
     Active Substance: DABIGATRAN ETEXILATE MESYLATE
     Indication: ATRIAL FIBRILLATION
     Route: 048

REACTIONS (11)
  - Nausea [Recovered/Resolved]
  - Dizziness [Recovered/Resolved]
  - Blood urea increased [Recovered/Resolved]
  - Tachycardia [Recovered/Resolved]
  - Haemorrhagic erosive gastritis [Recovered/Resolved]
  - Upper gastrointestinal haemorrhage [Recovered/Resolved]
  - Melaena [Recovered/Resolved]
  - Vulvitis [Recovered/Resolved]
  - Haematocrit decreased [Recovered/Resolved]
  - Hypotension [Recovered/Resolved]
  - Duodenitis [Recovered/Resolved]
